FAERS Safety Report 11232819 (Version 1)
Quarter: 2015Q3

REPORT INFORMATION
  Report Type: Spontaneous
  Country: GB (occurrence: GB)
  Receive Date: 20150701
  Receipt Date: 20150701
  Transmission Date: 20151125
  Serious: Yes (Hospitalization)
  Sender: FDA-Public Use
  Company Number: PHHY2015GB076665

PATIENT
  Age: 27 Year
  Sex: Female

DRUGS (1)
  1. PARACETAMOL [Suspect]
     Active Substance: ACETAMINOPHEN
     Indication: PRODUCT USED FOR UNKNOWN INDICATION
     Dosage: 11 G, UNK
     Route: 065

REACTIONS (3)
  - Jaundice [Recovered/Resolved]
  - Haemolysis [Recovered/Resolved]
  - Intentional overdose [Recovered/Resolved]
